FAERS Safety Report 4756594-X (Version None)
Quarter: 2005Q3

REPORT INFORMATION
  Report Type: 
  Country: None (occurrence: None)
  Receive Date: 20050830
  Receipt Date: 20050818
  Transmission Date: 20060218
  Serious: Yes (Hospitalization)
  Sender: FDA-Public Use
  Company Number: FI-ROCHE-414476

PATIENT
  Age: 46 Year
  Sex: Female

DRUGS (5)
  1. CAPECITABINE [Suspect]
     Indication: BREAST CANCER
     Dosage: TWO WEEKS TREATMENT FOLLOWED BY ONE WEEK REST.
     Route: 048
     Dates: start: 20050809
  2. DOCETAXEL [Suspect]
     Indication: BREAST CANCER
     Dosage: GIVEN ON DAY 1 OF A 3 WEEK CYCLE.
     Route: 042
     Dates: start: 20050809
  3. CYCLOPHOSPHAMIDE [Concomitant]
  4. EPIRUBICIN [Concomitant]
  5. FLUOROURACIL [Concomitant]

REACTIONS (1)
  - HICCUPS [None]
